FAERS Safety Report 15107041 (Version 1)
Quarter: 2018Q3

REPORT INFORMATION
  Report Type: Report from Study
  Country: US (occurrence: US)
  Receive Date: 20180704
  Receipt Date: 20180704
  Transmission Date: 20181010
  Serious: Yes (Hospitalization, Other)
  Sender: FDA-Public Use
  Company Number: US-JNJFOC-20180702034

PATIENT
  Age: 79 Year
  Sex: Male

DRUGS (21)
  1. ASCORBIC ACID. [Concomitant]
     Active Substance: ASCORBIC ACID
  2. DIGOX [Concomitant]
     Active Substance: DIGOXIN
  3. PROTONIX [Concomitant]
     Active Substance: PANTOPRAZOLE SODIUM
  4. CYANOCOBALAMIN. [Concomitant]
     Active Substance: CYANOCOBALAMIN
  5. FOLIC ACID. [Concomitant]
     Active Substance: FOLIC ACID
  6. LEVEMIR [Concomitant]
     Active Substance: INSULIN DETEMIR
  7. VITAMIN B6 [Concomitant]
     Active Substance: PYRIDOXINE HYDROCHLORIDE
  8. IMBRUVICA [Suspect]
     Active Substance: IBRUTINIB
     Indication: CHRONIC LYMPHOCYTIC LEUKAEMIA (IN REMISSION)
     Route: 048
     Dates: start: 20180505, end: 2018
  9. BACID [Concomitant]
     Active Substance: LACTOBACILLUS ACIDOPHILUS
  10. COENZYME Q10 [Concomitant]
     Active Substance: UBIDECARENONE
  11. VITAMIN D3 [Concomitant]
     Active Substance: CHOLECALCIFEROL
  12. ALLOPURINOL. [Concomitant]
     Active Substance: ALLOPURINOL
  13. MAGNESIUM OXIDE. [Concomitant]
     Active Substance: MAGNESIUM OXIDE
  14. LOPRESSOR [Concomitant]
     Active Substance: METOPROLOL TARTRATE
  15. LISINOPRIL. [Concomitant]
     Active Substance: LISINOPRIL
  16. WARFARIN SODIUM. [Concomitant]
     Active Substance: WARFARIN SODIUM
  17. HUMALOG [Concomitant]
     Active Substance: INSULIN LISPRO
  18. TYLENOL [Concomitant]
     Active Substance: ACETAMINOPHEN
  19. CELEXA [Concomitant]
     Active Substance: CITALOPRAM HYDROBROMIDE
  20. KLONOPIN [Concomitant]
     Active Substance: CLONAZEPAM
  21. CARDIZEM [Concomitant]
     Active Substance: DILTIAZEM HYDROCHLORIDE

REACTIONS (4)
  - Lung neoplasm malignant [Unknown]
  - Incorrect dose administered [Unknown]
  - Pleural effusion [Not Recovered/Not Resolved]
  - Off label use [Unknown]

NARRATIVE: CASE EVENT DATE: 20180505
